FAERS Safety Report 11898968 (Version 1)
Quarter: 2016Q1

REPORT INFORMATION
  Report Type: Spontaneous
  Country: US (occurrence: None)
  Receive Date: 20160107
  Receipt Date: 20160107
  Transmission Date: 20160526
  Serious: No
  Sender: FDA-Public Use
  Company Number: None

PATIENT
  Age: 72 Year
  Sex: Female

DRUGS (2)
  1. VELCADE [Suspect]
     Active Substance: BORTEZOMIB
     Indication: PLASMA CELL MYELOMA
     Dates: start: 201506, end: 201512
  2. ORAL CHEMO [Concomitant]

REACTIONS (3)
  - Antibody test positive [None]
  - Hypersomnia [None]
  - Upper limb fracture [None]

NARRATIVE: CASE EVENT DATE: 20151225
